FAERS Safety Report 13200881 (Version 1)
Quarter: 2017Q1

REPORT INFORMATION
  Report Type: Spontaneous
  Country: CA (occurrence: CA)
  Receive Date: 20170209
  Receipt Date: 20170209
  Transmission Date: 20170428
  Serious: Yes (Other)
  Sender: FDA-Public Use
  Company Number: CA-BAXTER-2017BAX004807

PATIENT
  Age: 74 Year
  Sex: Male

DRUGS (1)
  1. GLYCINE 1.5% IRRIGATION SOLUTION [Suspect]
     Active Substance: GLYCINE
     Indication: PRODUCT USED FOR UNKNOWN INDICATION
     Route: 065

REACTIONS (2)
  - Pupillary reflex impaired [Recovered/Resolved]
  - Blindness transient [Recovered/Resolved]
